FAERS Safety Report 12921805 (Version 1)
Quarter: 2016Q4

REPORT INFORMATION
  Report Type: Spontaneous
  Country: NO (occurrence: NO)
  Receive Date: 20161108
  Receipt Date: 20161108
  Transmission Date: 20170207
  Serious: Yes (Life-Threatening)
  Sender: FDA-Public Use
  Company Number: NO-PFIZER INC-2016513656

PATIENT
  Age: 68 Year
  Sex: Female

DRUGS (5)
  1. IMOVANE [Concomitant]
     Active Substance: ZOPICLONE
     Dosage: 7.5 MG, AS NEEDED
  2. KAJOS [Concomitant]
     Active Substance: POTASSIUM CITRATE
     Dosage: 15 ML, 2X/DAY
  3. EFEXOR DEPOT [Suspect]
     Active Substance: VENLAFAXINE HYDROCHLORIDE
     Indication: DEPRESSION
     Dosage: 75 MG, 3X/DAY
     Route: 048
     Dates: end: 20160929
  4. COZAAR [Concomitant]
     Active Substance: LOSARTAN POTASSIUM
  5. VIVAL [Concomitant]
     Active Substance: DIAZEPAM
     Dosage: 5 MG, 3 TIMES A WEEK

REACTIONS (2)
  - Subarachnoid haemorrhage [Recovering/Resolving]
  - Cerebral haemorrhage [Recovering/Resolving]

NARRATIVE: CASE EVENT DATE: 20160929
